FAERS Safety Report 16390940 (Version 1)
Quarter: 2019Q2

REPORT INFORMATION
  Report Type: Spontaneous
  Country: JP (occurrence: JP)
  Receive Date: 20190604
  Receipt Date: 20190604
  Transmission Date: 20190711
  Serious: Yes (Hospitalization, Other)
  Sender: FDA-Public Use
  Company Number: JP-009507513-1809JPN001276J

PATIENT
  Age: 28 Year
  Sex: Male
  Weight: 44 kg

DRUGS (3)
  1. CICLOSPORIN [Concomitant]
     Active Substance: CYCLOSPORINE
     Indication: IMMUNOSUPPRESSION
     Dosage: UNK
     Route: 065
  2. PREVYMIS [Suspect]
     Active Substance: LETERMOVIR
     Dosage: UNK
     Route: 041
     Dates: start: 201809
  3. PREVYMIS [Suspect]
     Active Substance: LETERMOVIR
     Indication: ANTIVIRAL PROPHYLAXIS
     Dosage: 240 MG, QD
     Route: 048
     Dates: start: 20180827, end: 201809

REACTIONS (4)
  - Enteritis [Recovered/Resolved]
  - Gastrointestinal oedema [Recovered/Resolved]
  - Ileus [Recovered/Resolved]
  - Human herpesvirus 6 infection [Recovered/Resolved]

NARRATIVE: CASE EVENT DATE: 20180827
